FAERS Safety Report 5166211-5 (Version None)
Quarter: 2006Q4

REPORT INFORMATION
  Report Type: 
  Country: None (occurrence: None)
  Receive Date: 20060830
  Receipt Date: 20060405
  Transmission Date: 20070319
  Serious: No
  Sender: FDA-Public Use
  Company Number: 223823

PATIENT
  Age: 60 Year
  Sex: Female

DRUGS (5)
  1. XOLAIR [Suspect]
     Indication: ASTHMA
     Dosage: 150 MG, 1/MONTH SUBCUTANEOUS
     Route: 058
     Dates: start: 20051101, end: 20060215
  2. QVAR 40 [Concomitant]
  3. SINGULAIR (MONTELEUKAST SODIUM) [Concomitant]
  4. ALBUTEROL (ALBUTEROL/ALBUTEROL SULFATE) [Concomitant]
  5. ZYRTEC [Concomitant]

REACTIONS (1)
  - PRURITUS [None]
